FAERS Safety Report 6612807-0 (Version None)
Quarter: 2010Q1

REPORT INFORMATION
  Report Type: 
  Country: None (occurrence: None)
  Receive Date: 20100303
  Receipt Date: 20100224
  Transmission Date: 20100710
  Serious: Yes (Hospitalization, Other)
  Sender: FDA-Public Use
  Company Number: PHHO2010SE03112

PATIENT
  Sex: Female

DRUGS (5)
  1. NO TREATMENT RECEIVED NOMED [Suspect]
  2. SANDIMMUNE [Suspect]
     Indication: RENAL TRANSPLANT
     Dosage: 100MG/DAY
     Route: 048
     Dates: start: 20080612
  3. MYFORTIC [Suspect]
     Indication: RENAL TRANSPLANT
     Dosage: UNK
     Route: 048
     Dates: start: 20090923
  4. PREDNISOLON [Suspect]
     Dosage: UNK
     Route: 048
  5. SELOKEEN ZOC [Suspect]

REACTIONS (11)
  - ANXIETY [None]
  - BLOOD CREATININE INCREASED [None]
  - CHILLS [None]
  - FATIGUE [None]
  - HALLUCINATION, AUDITORY [None]
  - MALAISE [None]
  - NAUSEA [None]
  - NIGHTMARE [None]
  - OLIGURIA [None]
  - PANIC ATTACK [None]
  - VOMITING [None]
